FAERS Safety Report 14672159 (Version 2)
Quarter: 2018Q3

REPORT INFORMATION
  Report Type: Spontaneous
  Country: US (occurrence: US)
  Receive Date: 20180323
  Receipt Date: 20180824
  Transmission Date: 20181010
  Serious: Yes (Death, Other)
  Sender: FDA-Public Use
  Company Number: US-ASTRAZENECA-2018SE33611

PATIENT
  Age: 30430 Day
  Sex: Male
  Weight: 85.7 kg

DRUGS (32)
  1. PRILOSEC OTC [Suspect]
     Active Substance: OMEPRAZOLE MAGNESIUM
     Indication: GASTROOESOPHAGEAL REFLUX DISEASE
     Dosage: ONCE DAILY
     Route: 048
  2. FLUTICASONE. [Concomitant]
     Active Substance: FLUTICASONE
  3. MONTELUKAST [Concomitant]
     Active Substance: MONTELUKAST SODIUM
  4. XARELTO [Concomitant]
     Active Substance: RIVAROXABAN
     Route: 048
  5. CAPTOPRIL. [Concomitant]
     Active Substance: CAPTOPRIL
     Route: 048
  6. FUROSEMIDE. [Concomitant]
     Active Substance: FUROSEMIDE
  7. CARVEDILOL. [Concomitant]
     Active Substance: CARVEDILOL
  8. LIPITOR [Concomitant]
     Active Substance: ATORVASTATIN CALCIUM
     Dates: start: 20101201, end: 20110801
  9. FLOMAX [Concomitant]
     Active Substance: TAMSULOSIN HYDROCHLORIDE
  10. CARVEDILOL. [Concomitant]
     Active Substance: CARVEDILOL
  11. SOTALOL. [Concomitant]
     Active Substance: SOTALOL
     Route: 065
  12. NEXIUM [Suspect]
     Active Substance: ESOMEPRAZOLE MAGNESIUM
     Indication: GASTROOESOPHAGEAL REFLUX DISEASE
     Route: 048
     Dates: start: 201104, end: 201305
  13. PENICILLIN NOS [Concomitant]
     Active Substance: PENICILLIN
     Dates: start: 20100119, end: 20100218
  14. LISINOPRIL. [Concomitant]
     Active Substance: LISINOPRIL
     Dosage: 5.0MG UNKNOWN
  15. LASIX [Concomitant]
     Active Substance: FUROSEMIDE
     Route: 048
  16. WARFARIN [Concomitant]
     Active Substance: WARFARIN
     Route: 065
  17. NEXIUM 24HR [Suspect]
     Active Substance: ESOMEPRAZOLE MAGNESIUM
     Route: 048
  18. ATORVASTATIN [Concomitant]
     Active Substance: ATORVASTATIN
     Dates: start: 20120125, end: 20150501
  19. AMOXICILLIN. [Concomitant]
     Active Substance: AMOXICILLIN
     Dates: start: 20080407
  20. ALKA?SELTZER [Concomitant]
     Active Substance: ANHYDROUS CITRIC ACID\ASPIRIN\SODIUM BICARBONATE
     Dates: start: 1970, end: 20151014
  21. SPIRONOLACTONE. [Concomitant]
     Active Substance: SPIRONOLACTONE
  22. FINASTERIDE. [Concomitant]
     Active Substance: FINASTERIDE
  23. PROTONIX [Suspect]
     Active Substance: PANTOPRAZOLE SODIUM
     Indication: GASTROOESOPHAGEAL REFLUX DISEASE
     Route: 048
     Dates: start: 20021115, end: 200712
  24. IBUPROFEN. [Concomitant]
     Active Substance: IBUPROFEN
     Indication: PAIN
     Dates: start: 201501, end: 201510
  25. NEXIUM [Suspect]
     Active Substance: ESOMEPRAZOLE MAGNESIUM
     Indication: GASTROOESOPHAGEAL REFLUX DISEASE
     Route: 048
  26. BUDESONIDE. [Concomitant]
     Active Substance: BUDESONIDE
     Dosage: 32MCG/INH
     Route: 045
  27. XOPENEX [Concomitant]
     Active Substance: LEVALBUTEROL HYDROCHLORIDE
  28. COREG [Concomitant]
     Active Substance: CARVEDILOL
     Route: 048
  29. SYNTHROID [Concomitant]
     Active Substance: LEVOTHYROXINE SODIUM
  30. PROTONIX [Suspect]
     Active Substance: PANTOPRAZOLE SODIUM
     Indication: GASTROOESOPHAGEAL REFLUX DISEASE
     Route: 065
     Dates: start: 200807, end: 201104
  31. ROLAIDS [Concomitant]
     Active Substance: CALCIUM CARBONATE\MAGNESIUM HYDROXIDE
     Dates: start: 1970, end: 20151014
  32. METOPROLOL. [Concomitant]
     Active Substance: METOPROLOL

REACTIONS (2)
  - Death [Fatal]
  - Chronic kidney disease [Unknown]

NARRATIVE: CASE EVENT DATE: 20150412
